FAERS Safety Report 9598374 (Version 1)
Quarter: 2013Q4

REPORT INFORMATION
  Report Type: Spontaneous
  Country: US (occurrence: US)
  Receive Date: 20131004
  Receipt Date: 20131004
  Transmission Date: 20140711
  Serious: No
  Sender: FDA-Public Use
  Company Number: US-AMGEN-USASP2013023323

PATIENT
  Age: 63 Year
  Sex: Female

DRUGS (12)
  1. ENBREL [Suspect]
     Indication: PRODUCT USED FOR UNKNOWN INDICATION
     Dosage: 25 MG, Q2WK
     Route: 058
  2. VIVELLE-DOT [Concomitant]
     Dosage: 0.037 MG, UNK
  3. OMEPRAZOLE [Concomitant]
     Dosage: 20 MG, UNK
  4. POTASSIUM [Concomitant]
     Dosage: 99 MG, UNK
  5. VITAMIN D3 [Concomitant]
     Dosage: 1000 UNIT, UNK
  6. FISH OIL [Concomitant]
     Dosage: UNK
  7. GLUCOSAMINE [Concomitant]
     Dosage: UNK
  8. MSM [Concomitant]
     Dosage: UNK
  9. B COMPLEX                          /00212701/ [Concomitant]
     Dosage: UNK
  10. MAGNESIUM [Concomitant]
     Dosage: 300 MG, UNK
  11. CITRACAL + D                       /01438101/ [Concomitant]
     Dosage: UNK
  12. TRIAMTERENE/HCTZ [Concomitant]
     Dosage: 50-75MG, UNK

REACTIONS (2)
  - Diarrhoea [Unknown]
  - Muscle spasms [Unknown]
